FAERS Safety Report 9657662 (Version 2)
Quarter: 2014Q1

REPORT INFORMATION
  Report Type: Spontaneous
  Country: FR (occurrence: FR)
  Receive Date: 20131030
  Receipt Date: 20140115
  Transmission Date: 20141002
  Serious: Yes (Other)
  Sender: FDA-Public Use
  Company Number: FR-TEVA-440523ISR

PATIENT
  Sex: Female

DRUGS (7)
  1. CARBOPLATINE TEVA 10 MG/ML [Suspect]
     Indication: OVARIAN CANCER
     Route: 041
     Dates: start: 20130809, end: 20130927
  2. PACLITAXEL [Concomitant]
     Indication: OVARIAN CANCER
  3. AZANTAC [Concomitant]
  4. POLARAMINE [Concomitant]
  5. PRIMPERAN [Concomitant]
  6. ZOPHREN [Concomitant]
  7. SOLUMEDROL [Concomitant]

REACTIONS (1)
  - Hypotension [Recovered/Resolved]
